FAERS Safety Report 5399081-0 (Version None)
Quarter: 2007Q3

REPORT INFORMATION
  Report Type: 
  Country: None (occurrence: None)
  Receive Date: 20070727
  Receipt Date: 20060703
  Transmission Date: 20080115
  Serious: No
  Sender: FDA-Public Use
  Company Number: A0609714A

PATIENT
  Age: 24 Year
  Sex: Female
  Weight: 65 kg

DRUGS (3)
  1. LOTRONEX [Suspect]
     Indication: IRRITABLE BOWEL SYNDROME
     Dosage: .5MG TWICE PER DAY
     Route: 048
     Dates: start: 20060622
  2. EFFEXOR [Concomitant]
  3. PAREGORIC [Concomitant]

REACTIONS (3)
  - DIZZINESS [None]
  - PRURITUS [None]
  - RASH [None]
